FAERS Safety Report 23128825 (Version 1)
Quarter: 2023Q4

REPORT INFORMATION
  Report Type: Report from Study
  Country: UY (occurrence: UY)
  Receive Date: 20231031
  Receipt Date: 20231031
  Transmission Date: 20240110
  Serious: Yes (Life-Threatening, Other)
  Sender: FDA-Public Use
  Company Number: UY-ABBVIE-5474248

PATIENT
  Age: 61 Year
  Sex: Female

DRUGS (1)
  1. RINVOQ [Suspect]
     Active Substance: UPADACITINIB
     Indication: Rheumatoid arthritis
     Dosage: FORM STRENGTH:15 MILLIGRAM
     Route: 048
     Dates: start: 20211018

REACTIONS (6)
  - Ischaemic stroke [Recovering/Resolving]
  - Gait disturbance [Unknown]
  - Joint stiffness [Unknown]
  - Pneumonia [Recovering/Resolving]
  - Wheelchair user [Unknown]
  - Memory impairment [Unknown]

NARRATIVE: CASE EVENT DATE: 20230901
